FAERS Safety Report 11394025 (Version 1)
Quarter: 2015Q3

REPORT INFORMATION
  Report Type: Spontaneous
  Country: IT (occurrence: IT)
  Receive Date: 20150819
  Receipt Date: 20150819
  Transmission Date: 20151125
  Serious: Yes (Hospitalization)
  Sender: FDA-Public Use
  Company Number: IT-ROCHE-1623074

PATIENT
  Age: 40 Year
  Sex: Male

DRUGS (3)
  1. CARBOLITHIUM [Concomitant]
     Active Substance: LITHIUM CARBONATE
     Indication: BIPOLAR I DISORDER
     Dosage: 300 MG CAPSULES, HARD- 50 CAPSULES
     Route: 048
     Dates: start: 20140101
  2. TOPAMAX [Concomitant]
     Active Substance: TOPIRAMATE
     Dosage: 100 MG FILM-COATED TABLETS- 60 TABLETS
     Route: 048
     Dates: start: 20140101
  3. RIVOTRIL [Suspect]
     Active Substance: CLONAZEPAM
     Indication: ANXIETY
     Dosage: 2 MG TABLETS-20 TABLETS
     Route: 048
     Dates: start: 20150629, end: 20150629

REACTIONS (3)
  - Sopor [Recovered/Resolved]
  - Psychomotor retardation [Recovered/Resolved]
  - Overdose [Unknown]

NARRATIVE: CASE EVENT DATE: 20150630
